FAERS Safety Report 7512310-X (Version None)
Quarter: 2011Q2

REPORT INFORMATION
  Report Type: 
  Country: None (occurrence: None)
  Receive Date: 20110531
  Receipt Date: 20110526
  Transmission Date: 20111010
  Serious: Yes (Death)
  Sender: FDA-Public Use
  Company Number: PHHY2011GB46241

PATIENT
  Age: 48 Year
  Sex: Male

DRUGS (3)
  1. ACETAMINOPHEN [Suspect]
  2. CLOZAPINE [Suspect]
     Indication: SCHIZOPHRENIA
  3. DIHYDROCODEINE BITARTRATE INJ [Suspect]

REACTIONS (1)
  - TOXICITY TO VARIOUS AGENTS [None]
